FAERS Safety Report 4759711-0 (Version None)
Quarter: 2005Q3

REPORT INFORMATION
  Report Type: 
  Country: None (occurrence: None)
  Receive Date: 20050826
  Receipt Date: 20050510
  Transmission Date: 20060218
  Serious: No
  Sender: FDA-Public Use
  Company Number: 214366

PATIENT
  Age: 46 Year
  Sex: Male
  Weight: 83 kg

DRUGS (6)
  1. RAPTIVA [Suspect]
     Indication: ECZEMA
     Dosage: 0.8 MG, 1/WEEK, SUBCUTANEOUS
     Route: 058
     Dates: start: 20050202
  2. CETAPHIL (CETYL ALCOHOL, PROPYLENE GLYCOL) [Concomitant]
  3. HYDROCORTISONE [Concomitant]
  4. GENERIC MULTIVITAMIN (MULTIVITAMINS NOS) [Concomitant]
  5. GLUCOSAMINE/CHONDROITIN (GLUCOSAMINE, CHONDROITIN SULFATE) [Concomitant]
  6. FISH OIL (FISH OIL) [Concomitant]

REACTIONS (2)
  - DRY SKIN [None]
  - OEDEMA PERIPHERAL [None]
